FAERS Safety Report 24133620 (Version 3)
Quarter: 2025Q1

REPORT INFORMATION
  Report Type: Spontaneous
  Country: IT (occurrence: IT)
  Receive Date: 20240724
  Receipt Date: 20250331
  Transmission Date: 20250409
  Serious: Yes (Hospitalization, Other)
  Sender: MYLAN
  Company Number: IT-JNJFOC-20240720833

PATIENT
  Age: 72 Year
  Sex: Male
  Weight: 70.18 kg

DRUGS (15)
  1. LOPERAMIDE [Suspect]
     Active Substance: LOPERAMIDE
     Indication: HER2 positive colorectal cancer
     Dosage: 4 MILLIGRAM, TID (4 MG THREE TIMES DAILY) (DAYS 1 TO 14)
     Dates: start: 20240523, end: 20240605
  2. LOPERAMIDE [Suspect]
     Active Substance: LOPERAMIDE
     Dosage: 4 MILLIGRAM, BID (4 MG TWICE DAILY) (DAY 15 THROUGH DAY 42)
     Dates: start: 20240606, end: 20240623
  3. TUCATINIB [Suspect]
     Active Substance: TUCATINIB
     Indication: HER2 positive colorectal cancer
     Dosage: 300 MILLIGRAM, BID (300 MG, 2X/DAY (BID))
     Dates: start: 20240523, end: 20240623
  4. TUCATINIB [Suspect]
     Active Substance: TUCATINIB
  5. TUCATINIB [Suspect]
     Active Substance: TUCATINIB
     Indication: HER2 positive colorectal cancer
     Dosage: 8 MG/KG Q3W SINGLE LOADING DOSE 8 MG/KG IV ON C1 D1
  6. OXALIPLATIN [Suspect]
     Active Substance: OXALIPLATIN
     Indication: HER2 positive colorectal cancer
     Dosage: 85 MG/SQ. METER, Q2W (85 MG/M2 EVERY 2 WEEKS ON DAYS 1, 15 AND 29 OF EACH 6-WEEK (42-DAY) CYCLE)
     Dates: start: 20240523, end: 20240618
  7. OXALIPLATIN [Suspect]
     Active Substance: OXALIPLATIN
     Indication: HER2 positive colorectal cancer
  8. OXALIPLATIN [Suspect]
     Active Substance: OXALIPLATIN
  9. OXALIPLATIN [Suspect]
     Active Substance: OXALIPLATIN
  10. TRASTUZUMAB [Suspect]
     Active Substance: TRASTUZUMAB
     Indication: HER2 positive colorectal cancer
     Dosage: 8 MG/KG, Q3W (8 MG/KG ON DAY 1 OF EVERY 3 WEEKS (Q3W) (SINGLE LOADING DOSE 8 MG/KG IV ON C1 D1))
     Dates: start: 20240523, end: 20240523
  11. LEVOLEUCOVORIN [Suspect]
     Active Substance: LEVOLEUCOVORIN
     Indication: HER2 positive colorectal cancer
     Dosage: 200 MILLIGRAM/SQ. METER, Q2W (200 MG/M2 EVERY 2 WEEKS ON DAYS 1, 15 AND 29 OF EACH 6-WEEK CYCLE)
     Dates: start: 20240523, end: 20240618
  12. FLUOROURACIL [Suspect]
     Active Substance: FLUOROURACIL
     Indication: HER2 positive colorectal cancer
     Dosage: 400 MILLIGRAM/SQ. METER, Q2W
     Dates: start: 20240523, end: 20240618
  13. FLUOROURACIL [Suspect]
     Active Substance: FLUOROURACIL
     Dosage: 2400 MG/M2 (IV OVER 46-48 HOURS) EVERY 2 WEEKS ON DAYS 1, 15 AND 29 OF EACH 6-WEEK CYCLE
  14. METFORMIN [Concomitant]
     Active Substance: METFORMIN HYDROCHLORIDE
     Indication: Product used for unknown indication
     Dates: start: 2014, end: 20240624
  15. EMPAGLIFLOZIN [Concomitant]
     Active Substance: EMPAGLIFLOZIN
     Indication: Product used for unknown indication
     Dates: start: 2014, end: 20240624

REACTIONS (4)
  - Blood creatinine increased [Recovered/Resolved]
  - Acute kidney injury [Recovered/Resolved]
  - Off label use [Unknown]
  - Nausea [Not Recovered/Not Resolved]

NARRATIVE: CASE EVENT DATE: 20240523
